FAERS Safety Report 9435874 (Version 3)
Quarter: 2014Q2

REPORT INFORMATION
  Report Type: Spontaneous
  Country: PT (occurrence: PT)
  Receive Date: 20130801
  Receipt Date: 20140411
  Transmission Date: 20141212
  Serious: Yes (Other)
  Sender: FDA-Public Use
  Company Number: PT-EISAI INC-E2090-02780-SPO-PT

PATIENT
  Age: 43 Year
  Sex: Male

DRUGS (5)
  1. ZONEGRAN [Suspect]
     Indication: EPILEPSY
     Route: 048
     Dates: start: 201209, end: 201211
  2. ABILIFY [Concomitant]
     Indication: DEPRESSION
     Dosage: UNKNOWN
     Route: 048
     Dates: start: 20121117, end: 20130301
  3. ALPRAZOLAM [Concomitant]
     Indication: ANXIETY
     Dosage: UNKNOWN
     Route: 048
  4. CLOMIPRAMINE [Concomitant]
     Indication: DEPRESSION
     Dosage: UNKNOWN
     Route: 048
  5. TRAZODONE [Concomitant]
     Indication: DEPRESSION
     Dosage: UNKNOWN
     Route: 048

REACTIONS (2)
  - Retinal vascular occlusion [Recovering/Resolving]
  - Dysgeusia [Unknown]
